FAERS Safety Report 8561880-1 (Version None)
Quarter: 2012Q3

REPORT INFORMATION
  Report Type: 
  Country: None (occurrence: None)
  Receive Date: 20120802
  Receipt Date: 20120726
  Transmission Date: 20120928
  Serious: Yes (Life-Threatening, Hospitalization, Other)
  Sender: FDA-Public Use
  Company Number: BR-ROCHE-1012570

PATIENT
  Sex: Male

DRUGS (12)
  1. TRAZODONE HYDROCHLORIDE [Concomitant]
     Indication: PRODUCT USED FOR UNKNOWN INDICATION
  2. XOLAIR [Suspect]
     Indication: ASTHMA
     Dosage: LAST INJECTION WAS ON 02 JANUARY 2012
     Dates: start: 20100401
  3. CITALOPRAM HYDROBROMIDE [Concomitant]
     Indication: PRODUCT USED FOR UNKNOWN INDICATION
  4. BUDESONIDE [Concomitant]
     Indication: PRODUCT USED FOR UNKNOWN INDICATION
     Dates: start: 20080101
  5. ALBUTEROL SULFATE AUTOHALER [Concomitant]
     Indication: PRODUCT USED FOR UNKNOWN INDICATION
  6. XOLAIR [Suspect]
     Dates: start: 20111031
  7. XOLAIR [Suspect]
     Dates: start: 20111114
  8. CLONAZEPAM [Concomitant]
     Indication: PRODUCT USED FOR UNKNOWN INDICATION
  9. FORMOTEROL FUMARATE [Concomitant]
     Indication: PRODUCT USED FOR UNKNOWN INDICATION
     Dosage: 12/400 UG
     Dates: start: 20080101
  10. XOLAIR [Suspect]
     Dates: start: 20110426, end: 20110607
  11. LIPITOR [Concomitant]
     Indication: PRODUCT USED FOR UNKNOWN INDICATION
  12. SPIRIVA [Concomitant]
     Indication: PRODUCT USED FOR UNKNOWN INDICATION
     Dates: start: 20080101

REACTIONS (11)
  - WHEEZING [None]
  - HYPERTENSION [None]
  - HYPERHIDROSIS [None]
  - DIZZINESS [None]
  - ASTHMA [None]
  - FATIGUE [None]
  - CONVULSION [None]
  - HYPOGLYCAEMIA [None]
  - BLOOD PRESSURE INCREASED [None]
  - COMA [None]
  - CHEST DISCOMFORT [None]
